FAERS Safety Report 25793887 (Version 1)
Quarter: 2025Q3

REPORT INFORMATION
  Report Type: Report from Study
  Country: CA (occurrence: CA)
  Receive Date: 20250912
  Receipt Date: 20250912
  Transmission Date: 20251020
  Serious: Yes (Hospitalization)
  Sender: TAKEDA
  Company Number: CA-TAKEDA-2025TUS078392

PATIENT
  Sex: Female

DRUGS (5)
  1. VEDOLIZUMAB [Suspect]
     Active Substance: VEDOLIZUMAB
     Indication: Colitis ulcerative
  2. MESALAMINE [Concomitant]
     Active Substance: MESALAMINE
     Dosage: 1.2 GRAM, QD
     Dates: start: 20250425
  3. Salofalk [Concomitant]
  4. PREDNISONE [Concomitant]
     Active Substance: PREDNISONE
  5. IRON [Concomitant]
     Active Substance: IRON
     Indication: Blood iron decreased

REACTIONS (1)
  - Malaise [Unknown]
